FAERS Safety Report 22376558 (Version 1)
Quarter: 2023Q2

REPORT INFORMATION
  Report Type: Other
  Country: IT (occurrence: IT)
  Receive Date: 20230528
  Receipt Date: 20230528
  Transmission Date: 20230721
  Serious: Yes (Hospitalization, Other)
  Sender: FDA-Public Use
  Company Number: None

PATIENT
  Age: 23 Year
  Sex: Male

DRUGS (9)
  1. AMOXICILLIN [Suspect]
     Active Substance: AMOXICILLIN
     Indication: Product used for unknown indication
     Dosage: 1 SCATOLA (CP DA 1 GRAMMO).
     Route: 048
     Dates: start: 20230505, end: 20230505
  2. IBUPROFEN [Suspect]
     Active Substance: IBUPROFEN
     Indication: Product used for unknown indication
     Dosage: 1 SCATOLA (CP DA 400 MG).
     Route: 048
     Dates: start: 20230505, end: 20230505
  3. BIPERIDEN [Suspect]
     Active Substance: BIPERIDEN
     Indication: Product used for unknown indication
     Dosage: 1 SCATOLA (CP DA 4 MG)
     Route: 048
     Dates: start: 20230505, end: 20230505
  4. VENLAFAXINE HYDROCHLORIDE [Suspect]
     Active Substance: VENLAFAXINE HYDROCHLORIDE
     Indication: Product used for unknown indication
     Dosage: 1 SCATOLA (37.5 MG)
     Route: 048
     Dates: start: 20230505, end: 20230505
  5. CETIRIZINE HYDROCHLORIDE [Suspect]
     Active Substance: CETIRIZINE HYDROCHLORIDE
     Indication: Product used for unknown indication
     Dosage: 1 SCATOLA (CP DA 5 MG+120 MG)
     Route: 048
     Dates: start: 20230505, end: 20230505
  6. KETOPROFEN [Suspect]
     Active Substance: KETOPROFEN
     Indication: Product used for unknown indication
     Dosage: UNK
     Route: 048
     Dates: start: 20230505
  7. ACETAMINOPHEN [Suspect]
     Active Substance: ACETAMINOPHEN
     Indication: Product used for unknown indication
     Dosage: 1 SCATOLA (500 MG).
     Route: 048
     Dates: start: 20230505, end: 20230505
  8. RIVOTRIL [Suspect]
     Active Substance: CLONAZEPAM
     Indication: Product used for unknown indication
     Dosage: 2 SCATOLE (2 MG).
     Route: 048
     Dates: start: 20230505, end: 20230505
  9. QUETIAPINE [Suspect]
     Active Substance: QUETIAPINE
     Indication: Product used for unknown indication
     Dosage: 1 SCATOLA (CP DA 100 MG)
     Route: 048
     Dates: start: 20230505, end: 20230505

REACTIONS (6)
  - Suicide attempt [Unknown]
  - Sinus tachycardia [None]
  - Coma [None]
  - Hypotension [None]
  - Intentional overdose [Unknown]
  - Bezoar [Unknown]

NARRATIVE: CASE EVENT DATE: 20230505
